FAERS Safety Report 6456798-4 (Version None)
Quarter: 2009Q4

REPORT INFORMATION
  Report Type: 
  Country: None (occurrence: None)
  Receive Date: 20091125
  Receipt Date: 20091123
  Transmission Date: 20100525
  Serious: No
  Sender: FDA-Public Use
  Company Number: US-B.I. PHARMACEUTICALS,INC./RIDGEFIELD-2009-BP-13651BP

PATIENT
  Sex: Male

DRUGS (10)
  1. SPIRIVA [Suspect]
     Indication: EMPHYSEMA
     Dosage: 18 MCG
     Route: 055
     Dates: start: 20070101
  2. SPIRIVA [Suspect]
     Indication: ASTHMA
  3. PREDNISONE TAB [Concomitant]
     Indication: ASTHMA
  4. PREDNISONE TAB [Concomitant]
     Indication: EMPHYSEMA
  5. ADVAIR DISKUS 100/50 [Concomitant]
     Indication: ASTHMA
  6. ADVAIR DISKUS 100/50 [Concomitant]
     Indication: EMPHYSEMA
  7. PRO-AIR [Concomitant]
     Indication: ASTHMA
  8. PRO-AIR [Concomitant]
     Indication: EMPHYSEMA
  9. THEOPHYLLINE [Concomitant]
     Indication: ASTHMA
  10. THEOPHYLLINE [Concomitant]
     Indication: EMPHYSEMA

REACTIONS (1)
  - LARYNGITIS [None]
